FAERS Safety Report 18524262 (Version 4)
Quarter: 2021Q1

REPORT INFORMATION
  Report Type: Spontaneous
  Country: CA (occurrence: CA)
  Receive Date: 20201119
  Receipt Date: 20210122
  Transmission Date: 20210419
  Serious: Yes (Hospitalization, Other)
  Sender: FDA-Public Use
  Company Number: CA-TEVA-2020-CA-1848939

PATIENT

DRUGS (5)
  1. ESOMEPRAZOLE. [Suspect]
     Active Substance: ESOMEPRAZOLE MAGNESIUM
     Indication: PRODUCT USED FOR UNKNOWN INDICATION
     Route: 064
  2. FIBRINOGEN [Suspect]
     Active Substance: FIBRINOGEN HUMAN
     Indication: DRUG THERAPY
     Dosage: MATERNAL DOSE WAS 12G (170 MG/KG, WEIGHT OF 71 KG); MATERNAL INDICATION: CONGENITAL DYSFIBRINOGEN...
     Route: 064
  3. MESALAZINE [Suspect]
     Active Substance: MESALAMINE
     Indication: PRODUCT USED FOR UNKNOWN INDICATION
     Route: 064
  4. RANITIDINE. [Suspect]
     Active Substance: RANITIDINE
     Indication: PRODUCT USED FOR UNKNOWN INDICATION
     Route: 064
  5. AZATHIOPRINE. [Suspect]
     Active Substance: AZATHIOPRINE
     Indication: PRODUCT USED FOR UNKNOWN INDICATION
     Route: 064

REACTIONS (4)
  - Foetal exposure during pregnancy [Unknown]
  - Foetal anaemia [Recovering/Resolving]
  - Foetal growth restriction [Recovered/Resolved]
  - Haemorrhage foetal [Recovering/Resolving]
